FAERS Safety Report 4281067-0 (Version None)
Quarter: 2004Q1

REPORT INFORMATION
  Report Type: 
  Country: None (occurrence: None)
  Receive Date: 20040127
  Receipt Date: 20040115
  Transmission Date: 20041129
  Serious: Yes (Hospitalization)
  Sender: FDA-Public Use
  Company Number: HQWYE463119JAN04

PATIENT
  Age: 50 Year
  Sex: Male

DRUGS (5)
  1. RAPAMUNE [Suspect]
     Indication: PROPHYLAXIS AGAINST TRANSPLANT REJECTION
     Dosage: 4 MG 1X PER 1 DAY ORAL
     Route: 048
     Dates: start: 20031019
  2. CELLCEPT [Suspect]
     Indication: IMMUNOSUPPRESSION
     Dosage: ORAL; INTRAVENOUS
     Route: 048
     Dates: end: 20040101
  3. CELLCEPT [Suspect]
     Indication: IMMUNOSUPPRESSION
     Dosage: ORAL; INTRAVENOUS
     Route: 048
     Dates: start: 20040102
  4. METHYLPREDNISOLONE [Suspect]
     Indication: IMMUNOSUPPRESSION
     Dosage: ORAL; INTRAVENOUS
     Route: 048
     Dates: end: 20040101
  5. METHYLPREDNISOLONE [Suspect]
     Indication: IMMUNOSUPPRESSION
     Dosage: ORAL; INTRAVENOUS
     Route: 048
     Dates: start: 20040102

REACTIONS (9)
  - ALANINE AMINOTRANSFERASE INCREASED [None]
  - ASPARTATE AMINOTRANSFERASE INCREASED [None]
  - BLOOD CREATININE INCREASED [None]
  - BLOOD POTASSIUM DECREASED [None]
  - C-REACTIVE PROTEIN INCREASED [None]
  - GASTROENTERITIS VIRAL [None]
  - GENERAL PHYSICAL HEALTH DETERIORATION [None]
  - HYPOCHROMIC ANAEMIA [None]
  - MICROCYTIC ANAEMIA [None]
